FAERS Safety Report 8210606-X (Version None)
Quarter: 2012Q1

REPORT INFORMATION
  Report Type: 
  Country: None (occurrence: None)
  Receive Date: 20120314
  Receipt Date: 20120305
  Transmission Date: 20120608
  Serious: Yes (Other)
  Sender: FDA-Public Use
  Company Number: GB-ASTRAZENECA-2011SE75242

PATIENT
  Age: 47 Year
  Sex: Female
  Weight: 62 kg

DRUGS (3)
  1. ZAFIRLUKAST [Suspect]
     Indication: EOSINOPHILIA
     Route: 048
     Dates: start: 20110901, end: 20111101
  2. ALFACALCIDOL [Concomitant]
     Route: 048
  3. ZAFIRLUKAST [Suspect]
     Indication: ASTHMA
     Route: 048
     Dates: start: 20110901, end: 20111101

REACTIONS (2)
  - THIRST [None]
  - POLYURIA [None]
